FAERS Safety Report 6994171-0 (Version None)
Quarter: 2010Q3

REPORT INFORMATION
  Report Type: 
  Country: None (occurrence: None)
  Receive Date: 20100917
  Receipt Date: 20100811
  Transmission Date: 20110219
  Serious: Yes (Hospitalization)
  Sender: FDA-Public Use
  Company Number: PHHY2010NL60406

PATIENT
  Sex: Male

DRUGS (2)
  1. ZOMETA [Suspect]
     Dosage: 4 MG/5ML
  2. ZOMETA [Suspect]
     Dosage: 4 MG/5ML
     Dates: start: 20100714

REACTIONS (4)
  - ASTHENIA [None]
  - BEDRIDDEN [None]
  - HYPOPHAGIA [None]
  - TRANSFUSION [None]
